FAERS Safety Report 19034167 (Version 3)
Quarter: 2022Q2

REPORT INFORMATION
  Report Type: Report from Study
  Country: BR (occurrence: BR)
  Receive Date: 20210319
  Receipt Date: 20220404
  Transmission Date: 20220721
  Serious: Yes (Hospitalization, Other)
  Sender: FDA-Public Use
  Company Number: BR-BAXALTA-2016BLT006491AA

PATIENT
  Sex: Male
  Weight: 73 kg

DRUGS (8)
  1. ANTI-INHIBITOR COAGULANT COMPLEX [Suspect]
     Active Substance: ANTI-INHIBITOR COAGULANT COMPLEX
     Indication: Factor VIII deficiency
     Dosage: 6000 IU, UNK
     Route: 065
     Dates: start: 2005
  2. ANTI-INHIBITOR COAGULANT COMPLEX [Suspect]
     Active Substance: ANTI-INHIBITOR COAGULANT COMPLEX
     Dosage: 6000 IU, 1X A DAY, TREATMENT FOR BLEED
     Route: 050
     Dates: start: 2005
  3. ANTI-INHIBITOR COAGULANT COMPLEX [Suspect]
     Active Substance: ANTI-INHIBITOR COAGULANT COMPLEX
     Dosage: 6000 IU, 1X A DAY, TREATMENT FOR BLEED
     Route: 065
     Dates: start: 20160831, end: 20160902
  4. ANTI-INHIBITOR COAGULANT COMPLEX [Suspect]
     Active Substance: ANTI-INHIBITOR COAGULANT COMPLEX
     Dosage: 5500 INTERNATIONAL UNIT, 3/WEEK
     Route: 050
  5. ANTI-INHIBITOR COAGULANT COMPLEX [Suspect]
     Active Substance: ANTI-INHIBITOR COAGULANT COMPLEX
     Dosage: 4500 INTERNATIONAL UNIT, 3/WEEK
     Route: 042
  6. ANTI-INHIBITOR COAGULANT COMPLEX [Suspect]
     Active Substance: ANTI-INHIBITOR COAGULANT COMPLEX
     Dosage: 4500 INTERNATIONAL UNIT, 3/WEEK
     Route: 042
     Dates: start: 2010, end: 20211125
  7. HEMO-8R [Suspect]
     Active Substance: ANTIHEMOPHILIC FACTOR, HUMAN RECOMBINANT
     Indication: Product used for unknown indication
     Dosage: UNK
     Route: 065
     Dates: start: 2005
  8. EMICIZUMAB [Concomitant]
     Active Substance: EMICIZUMAB
     Indication: Haemophilia
     Dosage: UNK
     Route: 065
     Dates: start: 20211125

REACTIONS (9)
  - Haemarthrosis [Unknown]
  - Haemorrhage [Unknown]
  - Contusion [Unknown]
  - Therapy non-responder [Unknown]
  - Eating disorder [Unknown]
  - Weight decreased [Unknown]
  - Dysstasia [Unknown]
  - Joint swelling [Unknown]
  - Arthralgia [Unknown]

NARRATIVE: CASE EVENT DATE: 20100101
